FAERS Safety Report 9191216 (Version 3)
Quarter: 2013Q2

REPORT INFORMATION
  Report Type: Report from Study
  Country: DE (occurrence: DE)
  Receive Date: 20130326
  Receipt Date: 20130409
  Transmission Date: 20140414
  Serious: Yes (Hospitalization)
  Sender: FDA-Public Use
  Company Number: DE-ROCHE-1204993

PATIENT
  Age: 44 Year
  Sex: Female
  Weight: 74 kg

DRUGS (5)
  1. TRASTUZUMAB [Suspect]
     Indication: BREAST CANCER
     Route: 042
     Dates: start: 20121130
  2. EPIRUBICIN [Suspect]
     Indication: PRODUCT USED FOR UNKNOWN INDICATION
     Dosage: LAT DOSE PRIOR TO SAE: 16/NOV/2012
     Route: 042
     Dates: start: 20121018
  3. PACLITAXEL [Suspect]
     Indication: PRODUCT USED FOR UNKNOWN INDICATION
     Dosage: LAST DATE PRIOR TO SAE:28/DEC/2012
     Route: 065
     Dates: start: 20121130
  4. CYCLOPHOSPHAMID [Suspect]
     Indication: PRODUCT USED FOR UNKNOWN INDICATION
     Dosage: LAST DATE PRIOR TO SAE : 08/FEB/2013
     Route: 065
     Dates: start: 20130111
  5. EUTHYROX 50 [Concomitant]
     Route: 065
     Dates: start: 2010

REACTIONS (3)
  - Chest pain [Recovered/Resolved]
  - Dyspnoea [Recovered/Resolved]
  - Neck pain [Recovered/Resolved]
